FAERS Safety Report 7827291-9 (Version None)
Quarter: 2011Q4

REPORT INFORMATION
  Report Type: 
  Country: None (occurrence: None)
  Receive Date: 20111020
  Receipt Date: 20111014
  Transmission Date: 20120403
  Serious: Yes (Death, Hospitalization, Congenital Anomaly)
  Sender: FDA-Public Use
  Company Number: DK-PFIZER INC-2011249261

PATIENT

DRUGS (1)
  1. SULFASALAZINE [Suspect]
     Dosage: 1000 MG, UNK
     Route: 064

REACTIONS (2)
  - MATERNAL EXPOSURE DURING PREGNANCY [None]
  - CONGENITAL DIAPHRAGMATIC HERNIA [None]
